FAERS Safety Report 5832833-9 (Version None)
Quarter: 2008Q3

REPORT INFORMATION
  Report Type: 
  Country: None (occurrence: None)
  Receive Date: 20080804
  Receipt Date: 20080723
  Transmission Date: 20090109
  Serious: Yes (Other)
  Sender: FDA-Public Use
  Company Number: US-PFIZER INC-2008062293

PATIENT
  Sex: Male
  Weight: 72.6 kg

DRUGS (6)
  1. CHANTIX [Suspect]
     Indication: SMOKING CESSATION THERAPY
  2. GLIBENCLAMIDE TABLET [Suspect]
     Indication: DIABETES MELLITUS
  3. LISINOPRIL [Concomitant]
     Indication: HYPERTENSION
  4. GLUCOPHAGE [Concomitant]
  5. ACETYLSALICYLIC ACID SRT [Concomitant]
  6. NEXIUM [Concomitant]
     Indication: DYSPEPSIA

REACTIONS (2)
  - ARTERIAL OCCLUSIVE DISEASE [None]
  - CHEST PAIN [None]
